FAERS Safety Report 8999136 (Version 1)
Quarter: 2013Q1

REPORT INFORMATION
  Report Type: Spontaneous
  Country: DE (occurrence: DE)
  Receive Date: 20130103
  Receipt Date: 20130103
  Transmission Date: 20140127
  Serious: Yes (Other)
  Sender: FDA-Public Use
  Company Number: DE-ELI_LILLY_AND_COMPANY-DE201212005450

PATIENT
  Age: 21 Year
  Sex: Female
  Weight: 75 kg

DRUGS (4)
  1. CYMBALTA [Suspect]
     Dosage: 30 MG, UNKNOWN
     Route: 048
     Dates: start: 20121217
  2. IBUPROFEN [Concomitant]
     Dosage: 2.6 G, SINGLE
  3. PARACETAMOL [Concomitant]
     Dosage: 5 G, SINGLE
  4. PIPAMPERON [Concomitant]
     Dosage: 1 G, SINGLE

REACTIONS (7)
  - Suicide attempt [Recovered/Resolved]
  - Extrasystoles [Recovered/Resolved]
  - Somnolence [Recovered/Resolved]
  - Vomiting [Recovered/Resolved]
  - Diarrhoea [Recovered/Resolved]
  - Overdose [Recovered/Resolved]
  - Tachycardia [Recovered/Resolved]
